FAERS Safety Report 7461490-3 (Version None)
Quarter: 2011Q2

REPORT INFORMATION
  Report Type: 
  Country: None (occurrence: None)
  Receive Date: 20110506
  Receipt Date: 20110504
  Transmission Date: 20111010
  Serious: No
  Sender: FDA-Public Use
  Company Number: US-PFIZER INC-2011096945

PATIENT
  Age: 40 Year
  Sex: Female
  Weight: 58.957 kg

DRUGS (1)
  1. GEODON [Suspect]
     Dosage: 20 MG, UNK
     Route: 048
     Dates: start: 20110101

REACTIONS (1)
  - DRUG INTOLERANCE [None]
